FAERS Safety Report 14016604 (Version 1)
Quarter: 2017Q3

REPORT INFORMATION
  Report Type: Report from Study
  Country: US (occurrence: US)
  Receive Date: 20170927
  Receipt Date: 20170927
  Transmission Date: 20171128
  Serious: Yes (Death)
  Sender: FDA-Public Use
  Company Number: US-PFIZER INC-2017415102

PATIENT
  Age: 55 Year
  Sex: Male

DRUGS (2)
  1. VERAPAMIL HCL [Suspect]
     Active Substance: VERAPAMIL HYDROCHLORIDE
     Dosage: UNK
  2. DILTIAZEM HCL [Suspect]
     Active Substance: DILTIAZEM HYDROCHLORIDE
     Dosage: UNK

REACTIONS (14)
  - Toxicity to various agents [Fatal]
  - Ventricular arrhythmia [Fatal]
  - Pneumonia aspiration [Fatal]
  - Coagulopathy [Fatal]
  - Depressed level of consciousness [Fatal]
  - Acute kidney injury [Fatal]
  - Bradycardia [Fatal]
  - Electrocardiogram QRS complex prolonged [Fatal]
  - Hypotension [Fatal]
  - Metabolic acidosis [Fatal]
  - Haemolysis [Fatal]
  - Leukocytosis [Fatal]
  - Atrioventricular block [Fatal]
  - Thrombocytopenia [Fatal]
